FAERS Safety Report 17598879 (Version 1)
Quarter: 2020Q1

REPORT INFORMATION
  Report Type: Spontaneous
  Country: IE (occurrence: IE)
  Receive Date: 20200330
  Receipt Date: 20200330
  Transmission Date: 20200409
  Serious: Yes (Disabling)
  Sender: FDA-Public Use
  Company Number: IE-MYLANLABS-2020M1031923

PATIENT
  Age: 63 Year
  Sex: Female
  Weight: 55 kg

DRUGS (5)
  1. ATORVASTATIN MYLAN [Concomitant]
     Active Substance: ATORVASTATIN
     Dosage: 10 MILLIGRAM, QD
     Dates: start: 20180101, end: 20200223
  2. CADELIUS [Suspect]
     Active Substance: CALCIUM CARBONATE\CHOLECALCIFEROL
     Indication: PRODUCT USED FOR UNKNOWN INDICATION
     Dosage: 600 MILLIGRAM (DAILY WITHOUT FOOD FOR 2 HOURS(600MG/1000 IU))
     Route: 048
     Dates: start: 20190201, end: 20200223
  3. PANADOL EXTRA [Concomitant]
     Active Substance: ACETAMINOPHEN\CAFFEINE
     Indication: PAIN
     Dosage: UNK UNK, QD
     Dates: start: 20200101, end: 20200223
  4. LYRICA [Concomitant]
     Active Substance: PREGABALIN
     Dosage: 75 MILLIGRAM, QD
     Dates: start: 20200115, end: 20200223
  5. FOSTEPOR ONCE WEEKLY 70MG TABLETS [Suspect]
     Active Substance: ALENDRONATE SODIUM
     Indication: PRODUCT USED FOR UNKNOWN INDICATION
     Dosage: 70 MILLIGRAM, QW (STANDING 30 MINUTES BEFORE FOOD)
     Route: 048
     Dates: start: 20190201, end: 20200223

REACTIONS (14)
  - Osteoarthritis [Not Recovered/Not Resolved]
  - Bursitis [Not Recovered/Not Resolved]
  - Synovial disorder [Not Recovered/Not Resolved]
  - Mobility decreased [Not Recovered/Not Resolved]
  - Neuralgia [Not Recovered/Not Resolved]
  - Muscle strain [Not Recovered/Not Resolved]
  - Asthenia [Not Recovered/Not Resolved]
  - Pain in extremity [Not Recovered/Not Resolved]
  - Joint stiffness [Not Recovered/Not Resolved]
  - Arthralgia [Not Recovered/Not Resolved]
  - Tendonitis [Not Recovered/Not Resolved]
  - Bone cyst [Not Recovered/Not Resolved]
  - Pain [Not Recovered/Not Resolved]
  - Musculoskeletal pain [Not Recovered/Not Resolved]

NARRATIVE: CASE EVENT DATE: 20191101
